FAERS Safety Report 25919655 (Version 1)
Quarter: 2025Q4

REPORT INFORMATION
  Report Type: Report from Study
  Country: US (occurrence: US)
  Receive Date: 20251014
  Receipt Date: 20251014
  Transmission Date: 20260118
  Serious: Yes (Other)
  Sender: MYLAN
  Company Number: US-MYLANLABS-2025M1086782

PATIENT
  Sex: Female
  Weight: 52.62 kg

DRUGS (12)
  1. ATORVASTATIN [Suspect]
     Active Substance: ATORVASTATIN
     Indication: Hypertension
     Dosage: UNK, QD (ONCE A DAY)
  2. ATORVASTATIN [Suspect]
     Active Substance: ATORVASTATIN
     Dosage: UNK, QD (ONCE A DAY)
     Route: 065
  3. ATORVASTATIN [Suspect]
     Active Substance: ATORVASTATIN
     Dosage: UNK, QD (ONCE A DAY)
     Route: 065
  4. ATORVASTATIN [Suspect]
     Active Substance: ATORVASTATIN
     Dosage: UNK, QD (ONCE A DAY)
  5. HYDROCHLOROTHIAZIDE [Concomitant]
     Active Substance: HYDROCHLOROTHIAZIDE
     Indication: Hypertension
     Dosage: 25 MILLIGRAM, QD (ONE A DAY)
  6. HYDROCHLOROTHIAZIDE [Concomitant]
     Active Substance: HYDROCHLOROTHIAZIDE
     Dosage: 25 MILLIGRAM, QD (ONE A DAY)
     Route: 048
  7. HYDROCHLOROTHIAZIDE [Concomitant]
     Active Substance: HYDROCHLOROTHIAZIDE
     Dosage: 25 MILLIGRAM, QD (ONE A DAY)
     Route: 048
  8. HYDROCHLOROTHIAZIDE [Concomitant]
     Active Substance: HYDROCHLOROTHIAZIDE
     Dosage: 25 MILLIGRAM, QD (ONE A DAY)
  9. LOSARTAN [Concomitant]
     Active Substance: LOSARTAN
     Indication: Hypertension
     Dosage: UNK, QD (ONCE A DAY)
  10. LOSARTAN [Concomitant]
     Active Substance: LOSARTAN
     Dosage: UNK, QD (ONCE A DAY)
     Route: 065
  11. LOSARTAN [Concomitant]
     Active Substance: LOSARTAN
     Dosage: UNK, QD (ONCE A DAY)
     Route: 065
  12. LOSARTAN [Concomitant]
     Active Substance: LOSARTAN
     Dosage: UNK, QD (ONCE A DAY)

REACTIONS (4)
  - Pneumonia [Recovering/Resolving]
  - Colitis ulcerative [Unknown]
  - Corneal transplant [Unknown]
  - Off label use [Unknown]

NARRATIVE: CASE EVENT DATE: 20180101
